FAERS Safety Report 9305199 (Version 2)
Quarter: 2013Q2

REPORT INFORMATION
  Report Type: Spontaneous
  Country: NZ (occurrence: NZ)
  Receive Date: 20130523
  Receipt Date: 20130617
  Transmission Date: 20140414
  Serious: Yes (Hospitalization)
  Sender: FDA-Public Use
  Company Number: NZ-AMGEN-NZLSP2013036059

PATIENT
  Age: 55 Year
  Sex: Male

DRUGS (9)
  1. ENBREL [Suspect]
     Indication: RHEUMATOID ARTHRITIS
     Dosage: 50 MG, WEEKLY
     Route: 058
     Dates: start: 20130411, end: 20130420
  2. WARFARIN [Concomitant]
     Dosage: 4-5 MG NOCTE
  3. PREDNISONE [Concomitant]
     Indication: RHEUMATOID ARTHRITIS
     Dosage: 20 MG, 1X/DAY
     Route: 048
  4. LEFLUNOMIDE [Concomitant]
     Dosage: UNK
  5. METHOTREXATE [Concomitant]
     Indication: RHEUMATOID ARTHRITIS
     Dosage: 20 MG, WEEKLY
     Route: 048
  6. FOLIC ACID [Concomitant]
     Indication: RHEUMATOID ARTHRITIS
     Dosage: 5 MG, WEEKLY
     Route: 048
  7. SULPHASALAZINE [Concomitant]
     Dosage: 500 MG, 2X/DAY
     Route: 048
  8. NAPROXEN [Concomitant]
     Indication: RHEUMATOID ARTHRITIS
     Dosage: 500 MG, BD PRN
     Route: 048
  9. LOSEC [Concomitant]
     Indication: PROPHYLAXIS
     Dosage: 20 MG, 1X/DAY
     Route: 048

REACTIONS (7)
  - Mouth ulceration [Recovered/Resolved]
  - Lip blister [Recovered/Resolved]
  - Lip exfoliation [Recovered/Resolved]
  - Lip swelling [Recovered/Resolved]
  - Rash erythematous [Recovered/Resolved]
  - Skin exfoliation [Recovered/Resolved]
  - Stevens-Johnson syndrome [Recovering/Resolving]
